FAERS Safety Report 13418666 (Version 1)
Quarter: 2017Q2

REPORT INFORMATION
  Report Type: Spontaneous
  Country: US (occurrence: US)
  Receive Date: 20170406
  Receipt Date: 20170406
  Transmission Date: 20170830
  Serious: No
  Sender: FDA-Public Use
  Company Number: US-ASTRAZENECA-2017SE33061

PATIENT
  Sex: Female
  Weight: 111.1 kg

DRUGS (2)
  1. CRESTOR [Suspect]
     Active Substance: ROSUVASTATIN CALCIUM
     Indication: MYOCARDIAL INFARCTION
     Route: 048
     Dates: start: 2012
  2. CRESTOR [Suspect]
     Active Substance: ROSUVASTATIN CALCIUM
     Indication: MYOCARDIAL INFARCTION
     Dosage: ROUSVASTATIN CALCIUM: 20MG, DAILY
     Route: 048
     Dates: start: 201702, end: 20170323

REACTIONS (5)
  - Pain in extremity [Unknown]
  - Diabetes mellitus [Unknown]
  - Contusion [Unknown]
  - Hypokinesia [Unknown]
  - Myalgia [Unknown]
